FAERS Safety Report 7536081-6 (Version None)
Quarter: 2011Q2

REPORT INFORMATION
  Report Type: 
  Country: None (occurrence: None)
  Receive Date: 20110609
  Receipt Date: 20110526
  Transmission Date: 20111010
  Serious: Yes (Hospitalization)
  Sender: FDA-Public Use
  Company Number: IT-RANBAXY-2011RR-45086

PATIENT
  Sex: Male

DRUGS (2)
  1. RANITIDINE [Suspect]
  2. LANSOPRAZOLE [Suspect]

REACTIONS (2)
  - DERMATITIS [None]
  - RESPIRATORY DISTRESS [None]
